FAERS Safety Report 12147333 (Version 5)
Quarter: 2016Q4

REPORT INFORMATION
  Report Type: Report from Study
  Country: FR (occurrence: FR)
  Receive Date: 20160304
  Receipt Date: 20161122
  Transmission Date: 20170207
  Serious: Yes (Hospitalization)
  Sender: FDA-Public Use
  Company Number: FR-AMGEN-FRANI2016024895

PATIENT
  Age: 84 Year
  Sex: Female

DRUGS (11)
  1. ATORVASTATINE [Concomitant]
     Active Substance: ATORVASTATIN
     Dosage: 10 MG, QD
  2. DENOSUMAB [Suspect]
     Active Substance: DENOSUMAB
     Indication: OSTEOPOROSIS POSTMENOPAUSAL
     Dosage: 60 MG, Q6MO
     Route: 058
     Dates: start: 20150612
  3. CALCIUM W/VITAMIN D [Concomitant]
     Active Substance: CALCIUM\VITAMIN D
     Dosage: 500MG + 400UI 1 DF, QD
  4. FLECAINE [Concomitant]
     Active Substance: FLECAINIDE
     Dosage: 150 MG, QD
  5. TRIMEBUTINE [Concomitant]
     Active Substance: TRIMEBUTINE
     Dosage: 100 MG, TID
  6. VITAMINE D [Concomitant]
     Dosage: 10000 UI 4 DROPS PER DAY
  7. CETIRIZINE [Concomitant]
     Active Substance: CETIRIZINE HYDROCHLORIDE
     Dosage: 10 MG, UNK
  8. VITALOGINK [Concomitant]
     Active Substance: GINKGO
     Dosage: 40 MG, TID
  9. CARDENSIEL [Concomitant]
     Active Substance: BISOPROLOL FUMARATE
     Dosage: 2.5 MG, QD
  10. DIFFU K [Concomitant]
     Active Substance: POTASSIUM CHLORIDE
     Dosage: 600 MG, QD
  11. ALLOPURINOL. [Concomitant]
     Active Substance: ALLOPURINOL
     Dosage: 100 UNK, QD

REACTIONS (2)
  - Chest pain [Recovered/Resolved]
  - Cardiac failure [Recovered/Resolved]

NARRATIVE: CASE EVENT DATE: 20151225
